FAERS Safety Report 8429605-8 (Version None)
Quarter: 2012Q2

REPORT INFORMATION
  Report Type: 
  Country: None (occurrence: None)
  Receive Date: 20120612
  Receipt Date: 20120606
  Transmission Date: 20120825
  Serious: Yes (Other)
  Sender: FDA-Public Use
  Company Number: US-TEVA-341826USA

PATIENT
  Sex: Female

DRUGS (4)
  1. DOFETILIDE [Interacting]
  2. AZITHROMYCIN [Interacting]
     Indication: PULMONARY OEDEMA
  3. WARFARIN [Suspect]
  4. CEPHALEXIN [Suspect]
     Indication: PULMONARY OEDEMA

REACTIONS (4)
  - SHOCK [None]
  - DRUG INTERACTION [None]
  - PULMONARY OEDEMA [None]
  - DRUG INEFFECTIVE [None]
